FAERS Safety Report 6343337-1 (Version None)
Quarter: 2009Q3

REPORT INFORMATION
  Report Type: 
  Country: None (occurrence: None)
  Receive Date: 20090908
  Receipt Date: 20090828
  Transmission Date: 20100115
  Serious: Yes (Other)
  Sender: FDA-Public Use
  Company Number: PHHY2009DE22419

PATIENT
  Sex: Female

DRUGS (7)
  1. EXFORGE [Suspect]
     Indication: HYPERTENSION
     Dosage: 160/10 ONCE DAILY
     Route: 048
     Dates: start: 20070209, end: 20090617
  2. LOVASTATIN [Concomitant]
  3. DRUSOPT [Concomitant]
  4. TIMOCTAL [Concomitant]
  5. GODAMED [Concomitant]
  6. PENDALON [Concomitant]
  7. CLIOGEST N [Concomitant]

REACTIONS (4)
  - LIPOMA [None]
  - LIPOMA EXCISION [None]
  - NODULE [None]
  - PAIN [None]
